FAERS Safety Report 15434506 (Version 3)
Quarter: 2018Q4

REPORT INFORMATION
  Report Type: Spontaneous
  Country: US (occurrence: US)
  Receive Date: 20180927
  Receipt Date: 20181207
  Transmission Date: 20190204
  Serious: Yes (Other)
  Sender: FDA-Public Use
  Company Number: US-009507513-1809USA008196

PATIENT
  Age: 22 Year
  Sex: Female
  Weight: 112.2 kg

DRUGS (1)
  1. NEXPLANON [Suspect]
     Active Substance: ETONOGESTREL
     Indication: CONTRACEPTION
     Dosage: ONE IMPLANT
     Route: 059
     Dates: start: 20150605, end: 20181128

REACTIONS (6)
  - Complication associated with device [Recovered/Resolved]
  - Complication of device removal [Recovered/Resolved]
  - Device deployment issue [Recovered/Resolved]
  - Incorrect product administration duration [Unknown]
  - Device dislocation [Recovered/Resolved]
  - Obesity [Recovering/Resolving]

NARRATIVE: CASE EVENT DATE: 201706
